FAERS Safety Report 12494059 (Version 2)
Quarter: 2016Q3

REPORT INFORMATION
  Report Type: Report from Study
  Country: US (occurrence: US)
  Receive Date: 20160623
  Receipt Date: 20160706
  Transmission Date: 20161109
  Serious: Yes (Hospitalization, Other)
  Sender: FDA-Public Use
  Company Number: US-ABBVIE-16K-163-1655844-00

PATIENT
  Age: 36 Year
  Sex: Female
  Weight: 58.57 kg

DRUGS (3)
  1. HUMIRA [Suspect]
     Active Substance: ADALIMUMAB
     Route: 058
     Dates: start: 20160613
  2. AZATHIOPRINE. [Suspect]
     Active Substance: AZATHIOPRINE
     Indication: CROHN^S DISEASE
     Route: 065
  3. HUMIRA [Suspect]
     Active Substance: ADALIMUMAB
     Indication: CROHN^S DISEASE
     Route: 058
     Dates: start: 2009, end: 201512

REACTIONS (12)
  - Inflammation [Not Recovered/Not Resolved]
  - Crohn^s disease [Not Recovered/Not Resolved]
  - Cholelithiasis [Not Recovered/Not Resolved]
  - Anaemia [Unknown]
  - Nausea [Not Recovered/Not Resolved]
  - Bronchitis chronic [Unknown]
  - Iron deficiency anaemia [Recovered/Resolved]
  - Immunodeficiency [Not Recovered/Not Resolved]
  - Bronchitis [Recovered/Resolved]
  - Drug ineffective [Recovered/Resolved]
  - Pneumonia viral [Recovered/Resolved]
  - Vomiting [Recovered/Resolved]

NARRATIVE: CASE EVENT DATE: 2015
